FAERS Safety Report 4892878-2 (Version None)
Quarter: 2005Q4

REPORT INFORMATION
  Report Type: 
  Country: None (occurrence: None)
  Receive Date: 20051223
  Receipt Date: 20050112
  Transmission Date: 20060501
  Serious: Yes (Other)
  Sender: FDA-Public Use
  Company Number: PHEH2005US00811

PATIENT
  Age: 25 Year
  Sex: Male

DRUGS (5)
  1. CLOZARIL [Suspect]
     Indication: BIPOLAR DISORDER
     Dosage: 175 MG, QHS, ORAL
     Route: 048
  2. LEXAPRO [Concomitant]
  3. KLONOPIN [Concomitant]
  4. NEXIUM [Concomitant]
  5. ALLEGRA D 24 HOUR [Concomitant]

REACTIONS (9)
  - BLINDNESS TRANSIENT [None]
  - DIZZINESS [None]
  - HEADACHE [None]
  - HYPOTENSION [None]
  - MIGRAINE [None]
  - NAUSEA [None]
  - SINUSITIS [None]
  - TINNITUS [None]
  - VISUAL FIELD DEFECT [None]
